FAERS Safety Report 21050331 (Version 1)
Quarter: 2022Q3

REPORT INFORMATION
  Report Type: Report from Study
  Country: FR (occurrence: FR)
  Receive Date: 20220707
  Receipt Date: 20220707
  Transmission Date: 20221027
  Serious: Yes (Other)
  Sender: FDA-Public Use
  Company Number: FR-ABBVIE-22K-056-4454475-00

PATIENT
  Age: 56 Year
  Sex: Female

DRUGS (3)
  1. HUMIRA [Suspect]
     Active Substance: ADALIMUMAB
     Indication: Crohn^s disease
     Route: 058
     Dates: start: 20211013, end: 20211013
  2. HUMIRA [Suspect]
     Active Substance: ADALIMUMAB
     Dosage: ON WEEK 2
     Route: 058
     Dates: start: 20211027, end: 20211027
  3. HUMIRA [Suspect]
     Active Substance: ADALIMUMAB
     Dosage: ON WEEK 4
     Route: 058
     Dates: start: 20211110

REACTIONS (8)
  - Heat stroke [Not Recovered/Not Resolved]
  - Chills [Not Recovered/Not Resolved]
  - Feeding disorder [Not Recovered/Not Resolved]
  - Flatulence [Recovered/Resolved]
  - Abdominal distension [Not Recovered/Not Resolved]
  - Abdominal pain upper [Not Recovered/Not Resolved]
  - Nausea [Not Recovered/Not Resolved]
  - Diarrhoea [Not Recovered/Not Resolved]

NARRATIVE: CASE EVENT DATE: 20220601
